FAERS Safety Report 14869675 (Version 8)
Quarter: 2018Q4

REPORT INFORMATION
  Report Type: Report from Study
  Country: CN (occurrence: CN)
  Receive Date: 20180509
  Receipt Date: 20181205
  Transmission Date: 20190204
  Serious: Yes (Hospitalization)
  Sender: FDA-Public Use
  Company Number: CN-ROCHE-2114826

PATIENT
  Age: 57 Year
  Sex: Male
  Weight: 62 kg

DRUGS (49)
  1. FOLIC ACID. [Concomitant]
     Active Substance: FOLIC ACID
     Indication: RHEUMATOID ARTHRITIS
     Route: 065
     Dates: start: 20171124
  2. ILAPRAZOLE [Concomitant]
     Active Substance: ILAPRAZOLE
     Route: 065
     Dates: start: 20180514, end: 20180514
  3. TAZOBACTAM SODIUM [Concomitant]
     Active Substance: TAZOBACTAM SODIUM
     Route: 065
     Dates: start: 20180507, end: 20180507
  4. ATROPINE. [Concomitant]
     Active Substance: ATROPINE
     Route: 065
     Dates: start: 20180423, end: 20180423
  5. CREATINE PHOSPHATE SODIUM [Concomitant]
     Active Substance: CREATINE
     Route: 065
     Dates: start: 20180508, end: 20180514
  6. METHYLPREDNISOLONE. [Concomitant]
     Active Substance: METHYLPREDNISOLONE
     Indication: RHEUMATOID ARTHRITIS
     Route: 048
     Dates: start: 20170810
  7. ALFACALCIDOL [Concomitant]
     Active Substance: ALFACALCIDOL
     Indication: RHEUMATOID ARTHRITIS
     Route: 065
     Dates: start: 20151009
  8. BICYCLOL [Concomitant]
     Active Substance: BICYCLOL
     Route: 065
     Dates: start: 20180213
  9. CREATINE PHOSPHATE SODIUM [Concomitant]
     Active Substance: CREATINE
     Route: 065
     Dates: start: 20180507, end: 20180507
  10. ALBUMIN [Concomitant]
     Active Substance: ALBUMIN HUMAN
     Route: 065
     Dates: start: 20180511, end: 20180511
  11. FUROSEMIDE. [Concomitant]
     Active Substance: FUROSEMIDE
     Route: 065
     Dates: start: 20180509, end: 20180509
  12. PLACEBO [Suspect]
     Active Substance: UNSPECIFIED INGREDIENT
     Indication: RHEUMATOID ARTHRITIS
     Dosage: ON 12/APR/2018, MOST RECENT DOSE OF BLINDED METHOTREXATE PRIOR TO AE ONSET.?ON 19/APR/2018, DATE OF
     Route: 048
     Dates: start: 20171126
  13. DIACEREIN [Concomitant]
     Active Substance: DIACEREIN
     Indication: RHEUMATOID ARTHRITIS
     Route: 065
     Dates: start: 20170810
  14. AMLODIPINE BESYLATE. [Concomitant]
     Active Substance: AMLODIPINE BESYLATE
     Indication: RHEUMATOID ARTHRITIS
     Route: 065
     Dates: start: 20180316
  15. ILAPRAZOLE [Concomitant]
     Active Substance: ILAPRAZOLE
     Route: 065
     Dates: start: 20180424, end: 20180424
  16. LANSOPRAZOLE. [Concomitant]
     Active Substance: LANSOPRAZOLE
     Route: 065
     Dates: start: 20180507, end: 20180507
  17. INSULIN [Concomitant]
     Active Substance: INSULIN NOS
     Route: 065
     Dates: start: 20180507, end: 20180507
  18. COENZYME COMPLEX [Concomitant]
     Active Substance: UNSPECIFIED INGREDIENT
     Route: 065
     Dates: start: 20180507, end: 20180507
  19. COENZYME COMPLEX [Concomitant]
     Active Substance: UNSPECIFIED INGREDIENT
     Route: 065
     Dates: start: 20180508, end: 20180514
  20. PARECOXIB SODIUM. [Concomitant]
     Active Substance: PARECOXIB SODIUM
     Route: 065
     Dates: start: 20180507, end: 20180507
  21. AMBROXOL HYDROCHLORIDE [Concomitant]
     Active Substance: AMBROXOL HYDROCHLORIDE
     Route: 042
     Dates: start: 20180508, end: 20180511
  22. TEPRENONE [Concomitant]
     Active Substance: TEPRENONE
     Indication: RHEUMATOID ARTHRITIS
     Route: 065
     Dates: start: 20151019
  23. CARBOPLATIN. [Concomitant]
     Active Substance: CARBOPLATIN
     Dosage: SECOND CYCLE
     Route: 065
     Dates: start: 20180623
  24. ILAPRAZOLE [Concomitant]
     Active Substance: ILAPRAZOLE
     Route: 065
     Dates: start: 20180425, end: 20180507
  25. CEFOPERAZONE SODIUM [Concomitant]
     Active Substance: CEFOPERAZONE SODIUM
     Route: 065
     Dates: start: 20180508, end: 20180513
  26. TAZOBACTAM SODIUM [Concomitant]
     Active Substance: TAZOBACTAM SODIUM
     Route: 065
     Dates: start: 20180508, end: 20180513
  27. PEMETREXED. [Concomitant]
     Active Substance: PEMETREXED
     Route: 065
     Dates: start: 20180530
  28. PEMETREXED. [Concomitant]
     Active Substance: PEMETREXED
     Dosage: THIRD CYCLE
     Route: 065
     Dates: start: 20180717
  29. CEFOPERAZONE SODIUM [Concomitant]
     Active Substance: CEFOPERAZONE SODIUM
     Route: 065
     Dates: start: 20180506, end: 20180506
  30. AMBROXOL HYDROCHLORIDE [Concomitant]
     Active Substance: AMBROXOL HYDROCHLORIDE
     Route: 055
     Dates: start: 20180508, end: 20180511
  31. CARBOPLATIN. [Concomitant]
     Active Substance: CARBOPLATIN
     Route: 065
     Dates: start: 20180530
  32. LANSOPRAZOLE. [Concomitant]
     Active Substance: LANSOPRAZOLE
     Route: 065
     Dates: start: 20180508, end: 20180514
  33. GLUTAMINE [Concomitant]
     Active Substance: GLUTAMINE
     Route: 065
     Dates: start: 20180507, end: 20180507
  34. ALBUMIN [Concomitant]
     Active Substance: ALBUMIN HUMAN
     Route: 065
     Dates: start: 20180512, end: 20180512
  35. FUROSEMIDE. [Concomitant]
     Active Substance: FUROSEMIDE
     Route: 065
     Dates: start: 20180512, end: 20180512
  36. BUDESONIDE. [Concomitant]
     Active Substance: BUDESONIDE
     Route: 065
     Dates: start: 20180508, end: 20180511
  37. TOCILIZUMAB. [Suspect]
     Active Substance: TOCILIZUMAB
     Indication: RHEUMATOID ARTHRITIS
     Dosage: MOST RECENT DOSE OF BLINDED TOCILIZUMAB PRIOR TO AE ONSET ON 13/APR/2018.
     Route: 058
     Dates: start: 20171124
  38. GLUCOSAMINE HYDROCHLORIDE [Concomitant]
     Active Substance: GLUCOSAMINE HYDROCHLORIDE
     Route: 065
     Dates: start: 20170810
  39. BICYCLOL [Concomitant]
     Active Substance: BICYCLOL
     Indication: RHEUMATOID ARTHRITIS
     Route: 065
     Dates: start: 20171221, end: 20180119
  40. PEMETREXED. [Concomitant]
     Active Substance: PEMETREXED
     Dosage: SECOND CYCLE
     Route: 065
     Dates: start: 20180623
  41. LIDOCAINE HYDROCHLORIDE. [Concomitant]
     Active Substance: LIDOCAINE HYDROCHLORIDE
     Route: 065
     Dates: start: 20180426, end: 20180426
  42. INSULIN [Concomitant]
     Active Substance: INSULIN NOS
     Route: 065
     Dates: start: 20180508, end: 20180514
  43. PARECOXIB SODIUM. [Concomitant]
     Active Substance: PARECOXIB SODIUM
     Route: 065
     Dates: start: 20180508, end: 20180510
  44. ALBUMIN [Concomitant]
     Active Substance: ALBUMIN HUMAN
     Route: 065
     Dates: start: 20180509, end: 20180509
  45. CARBOPLATIN. [Concomitant]
     Active Substance: CARBOPLATIN
     Dosage: THIRD CYCLE
     Route: 065
     Dates: start: 20180717
  46. CEFOPERAZONE SODIUM [Concomitant]
     Active Substance: CEFOPERAZONE SODIUM
     Route: 065
     Dates: start: 20180507, end: 20180507
  47. TAZOBACTAM SODIUM [Concomitant]
     Active Substance: TAZOBACTAM SODIUM
     Route: 065
     Dates: start: 20180506, end: 20180506
  48. AMINOCAPROIC ACID. [Concomitant]
     Active Substance: AMINOCAPROIC ACID
     Route: 065
     Dates: start: 20180507, end: 20180507
  49. FUROSEMIDE. [Concomitant]
     Active Substance: FUROSEMIDE
     Route: 065
     Dates: start: 20180511, end: 20180511

REACTIONS (1)
  - Lung neoplasm malignant [Not Recovered/Not Resolved]

NARRATIVE: CASE EVENT DATE: 201804
